FAERS Safety Report 10039436 (Version 1)
Quarter: 2014Q1

REPORT INFORMATION
  Report Type: Report from Study
  Country: BR (occurrence: BR)
  Receive Date: 20140326
  Receipt Date: 20140326
  Transmission Date: 20141002
  Serious: Yes (Death, Hospitalization)
  Sender: FDA-Public Use
  Company Number: PHHY2014BR036600

PATIENT
  Age: 93 Year
  Sex: Female

DRUGS (1)
  1. EXELON PATCH [Suspect]
     Indication: DEMENTIA ALZHEIMER^S TYPE
     Dosage: 1 DF, DAILY
     Route: 062
     Dates: start: 201307

REACTIONS (4)
  - Multi-organ failure [Fatal]
  - Laryngeal disorder [Fatal]
  - Choking [Fatal]
  - Aphagia [Fatal]
